FAERS Safety Report 10820924 (Version 1)
Quarter: 2015Q1

REPORT INFORMATION
  Report Type: Spontaneous
  Country: BR (occurrence: None)
  Receive Date: 20150213
  Receipt Date: 20150213
  Transmission Date: 20150721
  Serious: Yes (Life-Threatening, Other)
  Sender: FDA-Public Use
  Company Number: BR-20150005

PATIENT
  Age: 51 Year
  Sex: Male
  Weight: 101 kg

DRUGS (1)
  1. HEXABRIX [Suspect]
     Active Substance: IOXAGLATE MEGLUMINE\IOXAGLATE SODIUM
     Indication: CATHETERISATION CARDIAC
     Dosage: 80 ML, 1 IN 1 D (NOT OTHERWISE SPECIFIED)
     Route: 042
     Dates: start: 20150116, end: 20150116

REACTIONS (6)
  - Erythema [None]
  - Skin irritation [None]
  - Hypotension [None]
  - Pruritus [None]
  - Dyspnoea [None]
  - Hypersensitivity [None]

NARRATIVE: CASE EVENT DATE: 20150116
